FAERS Safety Report 5943546-7 (Version None)
Quarter: 2008Q4

REPORT INFORMATION
  Report Type: 
  Country: None (occurrence: None)
  Receive Date: 20081106
  Receipt Date: 20081029
  Transmission Date: 20090506
  Serious: Yes (Life-Threatening, Hospitalization, Other)
  Sender: FDA-Public Use
  Company Number: US-BAXTER-2008BH011560

PATIENT
  Age: 27 Month
  Sex: Male
  Weight: 14 kg

DRUGS (10)
  1. ROBINUL [Suspect]
     Indication: PROPHYLAXIS
     Route: 048
     Dates: start: 20080811, end: 20080811
  2. ROBINUL [Suspect]
     Indication: OFF LABEL USE
     Route: 048
     Dates: start: 20080811, end: 20080811
  3. DEPAKOTE [Concomitant]
     Indication: CONVULSION
     Route: 048
     Dates: start: 20070101
  4. TOPAMAX [Concomitant]
     Indication: CONVULSION
     Route: 048
     Dates: start: 20070101
  5. ROBINUL [Concomitant]
     Indication: SALIVARY HYPERSECRETION
     Route: 048
     Dates: start: 20070101
  6. ZANTAC [Concomitant]
     Indication: GASTROOESOPHAGEAL REFLUX DISEASE
     Route: 048
     Dates: start: 20070101
  7. ZYRTEC [Concomitant]
     Indication: MULTIPLE ALLERGIES
     Route: 048
     Dates: start: 20070101
  8. CHLORAL HYDRATE [Concomitant]
     Indication: SLEEP APNOEA SYNDROME
     Route: 048
     Dates: start: 20070101
  9. MULTI-VITAMINS [Concomitant]
     Indication: SUPPLEMENTATION THERAPY
     Route: 048
     Dates: start: 20070101
  10. MIRALAX [Concomitant]
     Indication: CONSTIPATION
     Dosage: DOSE UNIT:UNKNOWN
     Route: 048
     Dates: start: 20070101

REACTIONS (10)
  - DEHYDRATION [None]
  - FATIGUE [None]
  - HEART RATE INCREASED [None]
  - LUNG DISORDER [None]
  - LUNG INFECTION PSEUDOMONAL [None]
  - OVERDOSE [None]
  - PAIN [None]
  - PULMONARY HYPERTENSION [None]
  - RESPIRATORY DISTRESS [None]
  - URINARY RETENTION [None]
